FAERS Safety Report 19134976 (Version 6)
Quarter: 2025Q3

REPORT INFORMATION
  Report Type: Spontaneous
  Country: US (occurrence: US)
  Receive Date: 20210414
  Receipt Date: 20250804
  Transmission Date: 20251021
  Serious: No
  Sender: PFIZER
  Company Number: US-PFIZER INC-2021376823

PATIENT
  Age: 41 Year
  Sex: Female

DRUGS (4)
  1. XELJANZ XR [Suspect]
     Active Substance: TOFACITINIB CITRATE
     Indication: Rheumatoid arthritis
     Dosage: 11 MG, DAILY
     Route: 048
     Dates: start: 202010
  2. XELJANZ XR [Suspect]
     Active Substance: TOFACITINIB CITRATE
     Dosage: 11 MG, 1X/DAY
     Route: 048
     Dates: start: 202010
  3. XELJANZ XR [Suspect]
     Active Substance: TOFACITINIB CITRATE
     Dosage: 11 MG, DAILY
     Route: 048
     Dates: start: 2021
  4. METHOTREXATE [Concomitant]
     Active Substance: METHOTREXATE
     Dosage: UNK, WEEKLY

REACTIONS (13)
  - Therapeutic product effect incomplete [Unknown]
  - Pain [Unknown]
  - Chills [Unknown]
  - Feeling hot [Unknown]
  - Illness [Unknown]
  - Headache [Unknown]
  - Pyrexia [Unknown]
  - Discouragement [Recovering/Resolving]
  - Depressed mood [Recovering/Resolving]
  - Disease recurrence [Unknown]
  - Myalgia [Unknown]
  - Intentional dose omission [Unknown]
  - Product dose omission in error [Unknown]
